FAERS Safety Report 15566002 (Version 1)
Quarter: 2018Q4

REPORT INFORMATION
  Report Type: Spontaneous
  Country: LV (occurrence: LV)
  Receive Date: 20181030
  Receipt Date: 20181030
  Transmission Date: 20190205
  Serious: Yes (Other)
  Sender: FDA-Public Use
  Company Number: LV-PFIZER INC-2018439105

PATIENT
  Age: 42 Year
  Sex: Female
  Weight: 60 kg

DRUGS (2)
  1. CHAMPIX [Suspect]
     Active Substance: VARENICLINE TARTRATE
     Indication: SMOKING CESSATION THERAPY
     Dosage: UNK
     Route: 048
     Dates: start: 20160801, end: 20170501
  2. CHAMPIX [Suspect]
     Active Substance: VARENICLINE TARTRATE
     Dosage: UNK
     Route: 048
     Dates: start: 20180501, end: 20180506

REACTIONS (3)
  - Rheumatoid arthritis [Recovering/Resolving]
  - Rheumatoid arthritis [Recovering/Resolving]
  - Arthralgia [Recovering/Resolving]

NARRATIVE: CASE EVENT DATE: 20161101
